FAERS Safety Report 4876265-9 (Version None)
Quarter: 2006Q1

REPORT INFORMATION
  Report Type: 
  Country: None (occurrence: None)
  Receive Date: 20060106
  Receipt Date: 20051227
  Transmission Date: 20060701
  Serious: Yes (Other)
  Sender: FDA-Public Use
  Company Number: 2005AP000813

PATIENT
  Age: 56 Year
  Sex: Female

DRUGS (12)
  1. PAROXETINE HCL [Suspect]
     Indication: ANXIETY
     Dosage: 40 MG;HS;PO; SEE IMAGE
     Route: 048
     Dates: start: 20040901
  2. PAROXETINE HCL [Suspect]
     Indication: DEPRESSION
     Dosage: 40 MG;HS;PO; SEE IMAGE
     Route: 048
     Dates: start: 20040901
  3. PAROXETINE HCL [Suspect]
     Indication: ANXIETY
     Dosage: 40 MG;HS;PO; SEE IMAGE
     Route: 048
     Dates: start: 20050801
  4. PAROXETINE HCL [Suspect]
     Indication: DEPRESSION
     Dosage: 40 MG;HS;PO; SEE IMAGE
     Route: 048
     Dates: start: 20050801
  5. LORAZEPAM [Concomitant]
  6. TRAZODONE [Concomitant]
  7. BUPROPION [Concomitant]
  8. HYDROCHLOROTHIAZIDE [Concomitant]
  9. METFORMIN [Concomitant]
  10. LIPITOR [Concomitant]
  11. TRAMADOL HCL [Concomitant]
  12. ZOLOFT [Concomitant]

REACTIONS (6)
  - DIZZINESS [None]
  - FALL [None]
  - FRACTURED COCCYX [None]
  - HALLUCINATION, AUDITORY [None]
  - HALLUCINATION, TACTILE [None]
  - HALLUCINATION, VISUAL [None]
